FAERS Safety Report 7436685-5 (Version None)
Quarter: 2011Q2

REPORT INFORMATION
  Report Type: 
  Country: None (occurrence: None)
  Receive Date: 20110418
  Receipt Date: 20110406
  Transmission Date: 20111010
  Serious: Yes (Other)
  Sender: FDA-Public Use
  Company Number: 2011AP000502

PATIENT
  Age: 68 Year
  Sex: Female

DRUGS (3)
  1. ALENDRONATE SODIUM [Suspect]
     Indication: OSTEOPOROSIS
     Dosage: 70 MG;PO;QW
     Route: 048
     Dates: start: 20100917
  2. CALCIUM PHOSPHATE (CALCIUM PHOSPHATE) [Concomitant]
  3. CHOLECALCIFEROL (CHOLECALCIFEROL) [Concomitant]

REACTIONS (2)
  - ALOPECIA [None]
  - EMOTIONAL DISTRESS [None]
